FAERS Safety Report 21519089 (Version 2)
Quarter: 2022Q4

REPORT INFORMATION
  Report Type: Spontaneous
  Country: JP (occurrence: JP)
  Receive Date: 20221028
  Receipt Date: 20221220
  Transmission Date: 20230113
  Serious: Yes (Hospitalization, Other)
  Sender: FDA-Public Use
  Company Number: JP-CHUGAI-2022042273

PATIENT
  Sex: Female

DRUGS (2)
  1. KADCYLA [Suspect]
     Active Substance: ADO-TRASTUZUMAB EMTANSINE
     Indication: Breast cancer
     Route: 041
  2. KADCYLA [Suspect]
     Active Substance: ADO-TRASTUZUMAB EMTANSINE
     Route: 041

REACTIONS (4)
  - Radiation necrosis [Unknown]
  - Cerebral haemorrhage [Recovering/Resolving]
  - Metastases to central nervous system [Unknown]
  - Metastasis [Unknown]

NARRATIVE: CASE EVENT DATE: 20221001
